FAERS Safety Report 4432786-4 (Version None)
Quarter: 2004Q3

REPORT INFORMATION
  Report Type: 
  Country: None (occurrence: None)
  Receive Date: 20040823
  Receipt Date: 20040809
  Transmission Date: 20050211
  Serious: No
  Sender: FDA-Public Use
  Company Number: 04H-062-0270451-00

PATIENT
  Sex: 0

DRUGS (1)
  1. DOBUTAMINE HCL [Suspect]
     Indication: CARDIAC STRESS TEST
     Dosage: 10, 20, 30, 40MG/KG-1/MIN-1 TIL }/= 85%

REACTIONS (1)
  - ATRIAL FIBRILLATION [None]
